FAERS Safety Report 11024607 (Version 1)
Quarter: 2015Q2

REPORT INFORMATION
  Report Type: Spontaneous
  Country: US (occurrence: None)
  Receive Date: 20150413
  Receipt Date: 20150413
  Transmission Date: 20150821
  Serious: Yes (Death)
  Sender: FDA-Public Use
  Company Number: None

PATIENT
  Age: 85 Year
  Sex: Male
  Weight: 75 kg

DRUGS (1)
  1. PRADAXA [Suspect]
     Active Substance: DABIGATRAN ETEXILATE MESYLATE
     Indication: ATRIAL FIBRILLATION
     Dosage: 1 TABLET
     Route: 048

REACTIONS (6)
  - Cardiac arrest [None]
  - Circulatory collapse [None]
  - Hypotension [None]
  - Gastrointestinal haemorrhage [None]
  - Haemoglobin decreased [None]
  - Pulseless electrical activity [None]

NARRATIVE: CASE EVENT DATE: 20150310
